FAERS Safety Report 21645199 (Version 1)
Quarter: 2022Q4

REPORT INFORMATION
  Report Type: Report from Study
  Country: US (occurrence: US)
  Receive Date: 20221126
  Receipt Date: 20221126
  Transmission Date: 20230113
  Serious: Yes (Other)
  Sender: FDA-Public Use
  Company Number: US-ABBVIE-22K-163-4419878-00

PATIENT
  Sex: Male

DRUGS (2)
  1. HUMIRA [Suspect]
     Active Substance: ADALIMUMAB
     Indication: Ankylosing spondylitis
     Dosage: STRENGTH: 40 MG
     Route: 058
     Dates: start: 20211120, end: 202204
  2. HUMIRA [Suspect]
     Active Substance: ADALIMUMAB
     Dosage: DRUG START DATE: 2022?STRENGTH: 40 MG
     Route: 058

REACTIONS (7)
  - Shoulder operation [Unknown]
  - Loss of personal independence in daily activities [Unknown]
  - Joint range of motion decreased [Not Recovered/Not Resolved]
  - Back pain [Recovering/Resolving]
  - Mobility decreased [Recovering/Resolving]
  - Inflammation [Unknown]
  - Post procedural complication [Unknown]

NARRATIVE: CASE EVENT DATE: 20220101
